FAERS Safety Report 14655584 (Version 1)
Quarter: 2018Q1

REPORT INFORMATION
  Report Type: Spontaneous
  Country: GB (occurrence: GB)
  Receive Date: 20180319
  Receipt Date: 20180319
  Transmission Date: 20180509
  Serious: Yes (Hospitalization, Other)
  Sender: FDA-Public Use
  Company Number: GB-TEVA-2018-GB-869132

PATIENT
  Age: 23 Year
  Sex: Female

DRUGS (4)
  1. PARACETAMOL [Concomitant]
     Active Substance: ACETAMINOPHEN
  2. SUMATRIPTAN. [Suspect]
     Active Substance: SUMATRIPTAN
     Indication: MIGRAINE
     Route: 048
  3. IBUPROFEN. [Concomitant]
     Active Substance: IBUPROFEN
  4. CODEINE [Concomitant]
     Active Substance: CODEINE

REACTIONS (3)
  - Cerebral small vessel ischaemic disease [Recovering/Resolving]
  - Vasospasm [Unknown]
  - Ischaemic stroke [Unknown]
